FAERS Safety Report 4553315-0 (Version None)
Quarter: 2005Q1

REPORT INFORMATION
  Report Type: 
  Country: None (occurrence: None)
  Receive Date: 20050112
  Receipt Date: 20041111
  Transmission Date: 20050727
  Serious: Yes (Life-Threatening, Hospitalization)
  Sender: FDA-Public Use
  Company Number: 9271

PATIENT
  Age: 53 Year
  Sex: Female

DRUGS (13)
  1. METHOTREXATE [Suspect]
     Dosage: 15 MG WEEKLY SC
     Route: 058
     Dates: start: 20010901, end: 20041016
  2. PREDNISONE [Suspect]
     Dosage: 4 MG DAILY PO
     Route: 048
     Dates: start: 19980101
  3. ENBREL [Suspect]
     Indication: RHEUMATOID ARTHRITIS
     Dosage: 25 MG 2/WK SC
     Route: 058
     Dates: start: 20021201, end: 20041016
  4. LOPID [Concomitant]
  5. LEVOTHYROXINE [Concomitant]
  6. PROCARDIA [Concomitant]
  7. DYAZIDE [Concomitant]
  8. FOLIC ACID [Concomitant]
  9. PEPCID [Concomitant]
  10. ACTONEL [Concomitant]
  11. PILCARPINE HYDROCHLORIDE [Concomitant]
  12. INSULIN GLARGINE [Concomitant]
  13. INSULIN ASPART [Concomitant]

REACTIONS (11)
  - ACUTE RESPIRATORY DISTRESS SYNDROME [None]
  - ATELECTASIS [None]
  - BACTERIAL INFECTION [None]
  - HAEMOGLOBIN DECREASED [None]
  - HYPOTENSION [None]
  - LYMPHOPENIA [None]
  - PHARYNGOLARYNGEAL PAIN [None]
  - PNEUMONIA [None]
  - PULMONARY OEDEMA [None]
  - RESPIRATORY FAILURE [None]
  - SEPSIS [None]
